FAERS Safety Report 12323772 (Version 1)
Quarter: 2016Q2

REPORT INFORMATION
  Report Type: Spontaneous
  Country: IN (occurrence: IN)
  Receive Date: 20160502
  Receipt Date: 20160502
  Transmission Date: 20160815
  Serious: Yes (Hospitalization)
  Sender: FDA-Public Use
  Company Number: IN-HQ SPECIALTY-IN-2016INT000228

PATIENT
  Age: 35 Year
  Sex: Male

DRUGS (6)
  1. ETOPOSIDE. [Suspect]
     Active Substance: ETOPOSIDE
     Dosage: FULL DOSE IN THE 3RD CYCLE
  2. BLEOMYCIN [Suspect]
     Active Substance: BLEOMYCIN SULFATE
     Indication: CHORIOCARCINOMA
     Dosage: FULL DOSE FROM THE 4TH CYCLE
  3. CISPLATIN. [Suspect]
     Active Substance: CISPLATIN
     Indication: CHORIOCARCINOMA
     Dosage: 20 MG/M2 (35 MG FOR 5 DAYS)
  4. ETOPOSIDE. [Suspect]
     Active Substance: ETOPOSIDE
     Indication: CHORIOCARCINOMA
     Dosage: 75% OF THE DOSE FROM THE 2ND CYCLE
  5. CISPLATIN. [Suspect]
     Active Substance: CISPLATIN
     Dosage: FULL DOSE FROM THE 4TH CYCLE
  6. CISPLATIN. [Suspect]
     Active Substance: CISPLATIN
     Dosage: UNK, FIFTH CYCLE

REACTIONS (13)
  - Heart rate irregular [Recovered/Resolved]
  - Dizziness [Recovered/Resolved]
  - Ejection fraction decreased [Recovered/Resolved]
  - Left ventricular dysfunction [Recovered/Resolved]
  - Arterial thrombosis [Recovered/Resolved]
  - Dyspnoea [Recovered/Resolved]
  - Bundle branch block right [Recovered/Resolved]
  - Thrombocytopenia [Recovered/Resolved]
  - Hypotension [Recovered/Resolved]
  - Thrombosis [Recovered/Resolved]
  - Pain in extremity [Recovered/Resolved]
  - Cardiotoxicity [Recovered/Resolved]
  - Acute myocardial infarction [Recovered/Resolved]
